FAERS Safety Report 5997726-5 (Version None)
Quarter: 2008Q4

REPORT INFORMATION
  Report Type: 
  Country: None (occurrence: None)
  Receive Date: 20081212
  Receipt Date: 20081120
  Transmission Date: 20090506
  Serious: No
  Sender: FDA-Public Use
  Company Number: US-ABBOTT-08P-163-0488765-00

PATIENT
  Sex: Male

DRUGS (3)
  1. HUMIRA [Suspect]
     Indication: PSORIASIS
     Route: 058
     Dates: start: 20080501, end: 20080801
  2. HUMIRA [Suspect]
     Indication: PSORIASIS
     Route: 058
     Dates: start: 20080801, end: 20081001
  3. HUMIRA [Suspect]
     Route: 058
     Dates: start: 20081001

REACTIONS (8)
  - DRUG INEFFECTIVE [None]
  - ERYTHEMA [None]
  - EYE INFECTION [None]
  - FOLLICULITIS [None]
  - LACRIMATION INCREASED [None]
  - RASH [None]
  - SKIN DISCOLOURATION [None]
  - SKIN DISORDER [None]
